FAERS Safety Report 7583591-1 (Version None)
Quarter: 2011Q2

REPORT INFORMATION
  Report Type: 
  Country: None (occurrence: None)
  Receive Date: 20110630
  Receipt Date: 20110624
  Transmission Date: 20111010
  Serious: Yes (Other)
  Sender: FDA-Public Use
  Company Number: A0919475A

PATIENT
  Age: 60 Year
  Sex: Female

DRUGS (10)
  1. HYDROCHLOROTHIAZIDE [Concomitant]
     Indication: HYPERTENSION
     Dosage: 25MG PER DAY
     Route: 048
  2. CARTIA XT [Concomitant]
     Indication: HYPERTENSION
     Route: 048
  3. SIMVASTATIN [Concomitant]
     Indication: LIPIDS INCREASED
     Route: 048
  4. ATENOLOL [Concomitant]
     Indication: HYPERTENSION
     Route: 048
  5. VITAMIN D [Concomitant]
     Indication: VITAMIN SUPPLEMENTATION
     Route: 048
  6. TYKERB [Suspect]
     Dosage: 1000MGD PER DAY
     Route: 048
     Dates: start: 20110309
  7. IMODIUM MULTI-SYMPTOM RELIEF [Concomitant]
     Route: 048
  8. FASLODEX [Suspect]
     Route: 065
     Dates: start: 20110309
  9. MULTI-VITAMIN [Concomitant]
     Dosage: 1TAB PER DAY
     Route: 048
  10. PRILOSEC [Concomitant]
     Dosage: 20MG PER DAY
     Route: 048

REACTIONS (11)
  - DIARRHOEA [None]
  - DEHYDRATION [None]
  - HYPOTENSION [None]
  - HAEMATOCHEZIA [None]
  - RASH GENERALISED [None]
  - STOMATITIS [None]
  - ABDOMINAL PAIN [None]
  - NAUSEA [None]
  - ASTHENIA [None]
  - DECREASED APPETITE [None]
  - ORAL MUCOSAL EXFOLIATION [None]
